FAERS Safety Report 8565215-X (Version None)
Quarter: 2012Q3

REPORT INFORMATION
  Report Type: 
  Country: None (occurrence: None)
  Receive Date: 20120803
  Receipt Date: 20120725
  Transmission Date: 20120928
  Serious: Yes (Congenital Anomaly)
  Sender: FDA-Public Use
  Company Number: US-GLAXOSMITHKLINE-A0988114A

PATIENT
  Sex: Male

DRUGS (2)
  1. VALTREX [Concomitant]
     Indication: HERPES VIRUS INFECTION
     Dosage: 500MG PER DAY
     Route: 064
  2. PAXIL [Suspect]
     Indication: DEPRESSION
     Dosage: 10MG PER DAY
     Route: 064

REACTIONS (3)
  - HYPOSPADIAS [None]
  - FOETAL EXPOSURE DURING PREGNANCY [None]
  - CONGENITAL BOWING OF LONG BONES [None]
